FAERS Safety Report 5702096-3 (Version None)
Quarter: 2008Q2

REPORT INFORMATION
  Report Type: 
  Country: None (occurrence: None)
  Receive Date: 20080411
  Receipt Date: 20070801
  Transmission Date: 20081010
  Serious: No
  Sender: FDA-Public Use
  Company Number: US-ABBOTT-07P-163-0376556-00

PATIENT
  Sex: Male

DRUGS (1)
  1. DEPAKOTE [Suspect]
     Indication: PETIT MAL EPILEPSY
     Route: 048
     Dates: start: 20060301

REACTIONS (3)
  - ABDOMINAL PAIN [None]
  - AGGRESSION [None]
  - DECREASED APPETITE [None]
